FAERS Safety Report 4387337-X (Version None)
Quarter: 2004Q2

REPORT INFORMATION
  Report Type: 
  Country: None (occurrence: None)
  Receive Date: 20040625
  Receipt Date: 20040616
  Transmission Date: 20050107
  Serious: Yes (Hospitalization)
  Sender: FDA-Public Use
  Company Number: 2004-05-1803

PATIENT
  Age: 50 Year
  Sex: Male
  Weight: 52 kg

DRUGS (4)
  1. REBETOL [Suspect]
     Indication: HEPATITIS C
     Dosage: 600 MG ORAL
     Route: 048
     Dates: start: 20040106, end: 20040524
  2. INTRON A [Suspect]
     Indication: HEPATITIS C
     Dosage: 6 MU QD-TIW* INTRAMUSCULAR
     Route: 030
     Dates: start: 20040106, end: 20040119
  3. INTRON A [Suspect]
     Indication: HEPATITIS C
     Dosage: 6 MU QD-TIW* INTRAMUSCULAR
     Route: 030
     Dates: start: 20040106, end: 20040524
  4. INTRON A [Suspect]
     Indication: HEPATITIS C
     Dosage: 6 MU QD-TIW* INTRAMUSCULAR
     Route: 030
     Dates: start: 20040120, end: 20040524

REACTIONS (3)
  - DEPRESSED LEVEL OF CONSCIOUSNESS [None]
  - PLATELET COUNT DECREASED [None]
  - TONIC CONVULSION [None]
